FAERS Safety Report 8522852-6 (Version None)
Quarter: 2012Q3

REPORT INFORMATION
  Report Type: 
  Country: None (occurrence: None)
  Receive Date: 20120720
  Receipt Date: 20120711
  Transmission Date: 20120928
  Serious: Yes (Other)
  Sender: FDA-Public Use
  Company Number: US-BIOGENIDEC-2012BI013457

PATIENT
  Age: 49 Year
  Sex: Female

DRUGS (9)
  1. TYSABRI [Suspect]
     Route: 042
     Dates: start: 20111212, end: 20120201
  2. AMITRIPTYLINE HCL [Concomitant]
     Route: 048
  3. NORCO [Concomitant]
     Indication: PAIN
     Route: 048
  4. NEXIUM [Concomitant]
     Route: 048
  5. ZANAFLEX [Concomitant]
     Route: 048
  6. CELEXA [Concomitant]
     Route: 048
  7. NORCO [Concomitant]
     Route: 048
  8. IMURAN [Concomitant]
     Route: 048
  9. TYSABRI [Suspect]
     Indication: CROHN'S DISEASE
     Route: 042
     Dates: start: 20040101, end: 20050201

REACTIONS (3)
  - BENIGN INTRACRANIAL HYPERTENSION [None]
  - MIGRAINE [None]
  - VISUAL IMPAIRMENT [None]
